FAERS Safety Report 19921129 (Version 1)
Quarter: 2021Q4

REPORT INFORMATION
  Report Type: Spontaneous
  Country: NL (occurrence: NL)
  Receive Date: 20211005
  Receipt Date: 20211005
  Transmission Date: 20220303
  Serious: Yes (Other)
  Sender: FDA-Public Use
  Company Number: None

PATIENT
  Sex: Male
  Weight: 76 kg

DRUGS (3)
  1. CLINDAMYCIN HYDROCHLORIDE [Suspect]
     Active Substance: CLINDAMYCIN HYDROCHLORIDE
     Indication: Vascular graft infection
     Dosage: 1200 MILLIGRAM DAILY; 2X A DAY
     Dates: start: 20200921, end: 20210222
  2. CARVEDILOL TABLET  6,25MG / Brand name not specified [Concomitant]
     Dosage: 6,25 MG (MILLIGRAM)THERAPY START DATE :THERAPY END DATE:ASKU
  3. CANDESARTAN TABLET  8MG / Brand name not specified [Concomitant]
     Dosage: 8 MG (MILLIGRAM)THERAPY START DATE:THERAPY END DATE :ASKU

REACTIONS (3)
  - Mood swings [Recovered/Resolved]
  - Aggression [Recovered/Resolved]
  - Paranoia [Recovered/Resolved]
